FAERS Safety Report 10362595 (Version 1)
Quarter: 2014Q1

REPORT INFORMATION
  Report Type: Spontaneous
  Country: US (occurrence: None)
  Receive Date: 20140306
  Receipt Date: 20140306
  Transmission Date: 20141002
  Serious: Yes (Other)
  Sender: FDA-Public Use
  Company Number: 163-21880-13021267

PATIENT
  Age: 51 Year
  Sex: Female

DRUGS (4)
  1. REVLIMID [Suspect]
     Indication: PLASMA CELL MYELOMA
     Dosage: 14 IN 14 D
     Route: 048
     Dates: start: 20091231, end: 20130207
  2. DEXAMETHASONE (UNKNOWN) [Concomitant]
  3. AZITHROMYCIN (UNKNOWN) [Concomitant]
  4. ZOLIMA (UNKNOWN) [Concomitant]

REACTIONS (1)
  - Plasma cell myeloma [None]
